FAERS Safety Report 25369815 (Version 2)
Quarter: 2025Q2

REPORT INFORMATION
  Report Type: Spontaneous
  Country: US (occurrence: US)
  Receive Date: 20250528
  Receipt Date: 20250616
  Transmission Date: 20250716
  Serious: No
  Sender: MYLAN
  Company Number: US-MYLANLABS-2025M1042118

PATIENT
  Age: 40 Year
  Sex: Female
  Weight: 90.72 kg

DRUGS (4)
  1. FENTANYL TRANSDERMAL SYSTEM [Suspect]
     Active Substance: FENTANYL
     Indication: Intervertebral disc degeneration
     Dosage: 50 MICROGRAM, QH (ONE PATCH EVERY 72 HOURS)
     Dates: start: 202505
  2. FENTANYL TRANSDERMAL SYSTEM [Suspect]
     Active Substance: FENTANYL
     Indication: Intervertebral disc protrusion
     Dosage: 50 MICROGRAM, QH (ONE PATCH EVERY 72 HOURS)
     Route: 062
     Dates: start: 202505
  3. FENTANYL TRANSDERMAL SYSTEM [Suspect]
     Active Substance: FENTANYL
     Indication: Arthritis
     Dosage: 50 MICROGRAM, QH (ONE PATCH EVERY 72 HOURS)
     Route: 062
     Dates: start: 202505
  4. FENTANYL TRANSDERMAL SYSTEM [Suspect]
     Active Substance: FENTANYL
     Indication: Fibromyalgia
     Dosage: 50 MICROGRAM, QH (ONE PATCH EVERY 72 HOURS)
     Dates: start: 202505

REACTIONS (5)
  - Wrong technique in product usage process [Unknown]
  - Off label use [Unknown]
  - Product communication issue [Unknown]
  - Product adhesion issue [Unknown]
  - Product substitution issue [Unknown]

NARRATIVE: CASE EVENT DATE: 20250501
